FAERS Safety Report 10281064 (Version 2)
Quarter: 2014Q3

REPORT INFORMATION
  Report Type: Report from Study
  Country: CA (occurrence: CA)
  Receive Date: 20140707
  Receipt Date: 20140707
  Transmission Date: 20150326
  Serious: Yes (Other)
  Sender: FDA-Public Use
  Company Number: CA-BRISTOL-MYERS SQUIBB COMPANY-20587846

PATIENT
  Age: 44 Year
  Sex: Female

DRUGS (6)
  1. ARAVA [Concomitant]
     Active Substance: LEFLUNOMIDE
  2. ORENCIA [Suspect]
     Active Substance: ABATACEPT
     Indication: RHEUMATOID ARTHRITIS
     Dates: start: 20120222
  3. FOLIC ACID. [Concomitant]
     Active Substance: FOLIC ACID
  4. METHOTREXATE [Concomitant]
     Active Substance: METHOTREXATE
  5. PREDNISONE. [Concomitant]
     Active Substance: PREDNISONE
  6. LANSOPRAZOLE. [Concomitant]
     Active Substance: LANSOPRAZOLE

REACTIONS (9)
  - Dyspnoea [Unknown]
  - Helicobacter infection [Unknown]
  - Movement disorder [Unknown]
  - Cold sweat [Recovered/Resolved]
  - Pain [Unknown]
  - Nausea [Unknown]
  - Palpitations [Unknown]
  - Aphasia [Unknown]
  - Gastric ulcer [Unknown]

NARRATIVE: CASE EVENT DATE: 201307
